APPROVED DRUG PRODUCT: LEVOFLOXACIN
Active Ingredient: LEVOFLOXACIN
Strength: EQ 500MG/20ML (EQ 25MG/ML)
Dosage Form/Route: INJECTABLE;INJECTION
Application: A091436 | Product #001
Applicant: BAXTER HEALTHCARE CORP
Approved: Jun 5, 2013 | RLD: No | RS: No | Type: DISCN